FAERS Safety Report 7201124-6 (Version None)
Quarter: 2010Q4

REPORT INFORMATION
  Report Type: 
  Country: None (occurrence: None)
  Receive Date: 20101229
  Receipt Date: 20101222
  Transmission Date: 20110411
  Serious: No
  Sender: FDA-Public Use
  Company Number: US-BIOGENIDEC-2010BI044737

PATIENT
  Age: 48 Year
  Sex: Female

DRUGS (5)
  1. TYSABRI [Suspect]
     Indication: MULTIPLE SCLEROSIS
     Route: 042
     Dates: start: 20060901, end: 20080101
  2. TYSABRI [Suspect]
     Route: 042
     Dates: start: 20050216, end: 20050216
  3. TYSABRI [Suspect]
     Route: 042
     Dates: start: 20080101, end: 20100101
  4. TYSABRI [Suspect]
     Route: 042
     Dates: start: 20100101, end: 20100801
  5. TYSABRI [Suspect]
     Route: 042
     Dates: start: 20100801

REACTIONS (1)
  - FALL [None]
